FAERS Safety Report 18306037 (Version 1)
Quarter: 2020Q3

REPORT INFORMATION
  Report Type: Spontaneous
  Country: US (occurrence: US)
  Receive Date: 20200923
  Receipt Date: 20200923
  Transmission Date: 20201103
  Serious: Yes (Life-Threatening, Other)
  Sender: FDA-Public Use
  Company Number: None

PATIENT
  Age: 50 Year
  Sex: Female
  Weight: 73.94 kg

DRUGS (1)
  1. LITHIUM (LITHIUM CARBONATE 300MG CAP) [Suspect]
     Active Substance: LITHIUM CARBONATE
     Indication: SCHIZOAFFECTIVE DISORDER
     Dates: start: 20181127, end: 20200804

REACTIONS (2)
  - Confusional state [None]
  - Intracranial pressure increased [None]

NARRATIVE: CASE EVENT DATE: 20200804
